FAERS Safety Report 6085760-9 (Version None)
Quarter: 2009Q1

REPORT INFORMATION
  Report Type: 
  Country: None (occurrence: None)
  Receive Date: 20090220
  Receipt Date: 20090213
  Transmission Date: 20090719
  Serious: Yes (Death)
  Sender: FDA-Public Use
  Company Number: US-BIOGENIDEC-2008BI020973

PATIENT
  Age: 46 Year
  Sex: Male
  Weight: 83 kg

DRUGS (7)
  1. TYSABRI [Suspect]
     Indication: MULTIPLE SCLEROSIS
     Route: 042
     Dates: start: 20050201, end: 20050201
  2. TYSABRI [Suspect]
     Route: 042
     Dates: start: 20070607
  3. SIMVASTATIN [Concomitant]
  4. ZINC [Concomitant]
  5. FLAX SEED OIL [Concomitant]
  6. MULTI-VITAMIN [Concomitant]
  7. ROZEREM [Concomitant]

REACTIONS (1)
  - ARTERIOSCLEROSIS CORONARY ARTERY [None]
